FAERS Safety Report 24977774 (Version 4)
Quarter: 2025Q2

REPORT INFORMATION
  Report Type: Spontaneous
  Country: NL (occurrence: NL)
  Receive Date: 20250217
  Receipt Date: 20250428
  Transmission Date: 20250716
  Serious: Yes (Hospitalization, Other)
  Sender: SANDOZ
  Company Number: NL-ABBVIE-6122934

PATIENT
  Age: 63 Year
  Sex: Male

DRUGS (19)
  1. ALLOPURINOL [Suspect]
     Active Substance: ALLOPURINOL
     Indication: Tumour lysis syndrome
     Route: 065
     Dates: start: 202402, end: 202403
  2. ALLOPURINOL [Suspect]
     Active Substance: ALLOPURINOL
     Indication: Prophylaxis
  3. FOLIC ACID [Suspect]
     Active Substance: FOLIC ACID
     Indication: Haemolytic anaemia
     Route: 065
  4. FOLIC ACID [Suspect]
     Active Substance: FOLIC ACID
     Route: 065
     Dates: start: 20240428
  5. IBRUTINIB [Suspect]
     Active Substance: IBRUTINIB
     Indication: Chronic lymphocytic leukaemia
     Route: 048
     Dates: start: 202402
  6. IBRUTINIB [Suspect]
     Active Substance: IBRUTINIB
     Indication: Chronic lymphocytic leukaemia
     Route: 048
     Dates: end: 202402
  7. IBRUTINIB [Suspect]
     Active Substance: IBRUTINIB
     Route: 065
     Dates: end: 202403
  8. METHYLPREDNISOLONE [Suspect]
     Active Substance: METHYLPREDNISOLONE
     Route: 065
     Dates: start: 20240428, end: 2024
  9. METHYLPREDNISOLONE [Suspect]
     Active Substance: METHYLPREDNISOLONE
     Indication: Haemolytic anaemia
     Route: 065
     Dates: end: 2024
  10. PREDNISONE [Suspect]
     Active Substance: PREDNISONE
     Indication: Haemolytic anaemia
     Route: 065
     Dates: start: 2024
  11. RITUXIMAB [Suspect]
     Active Substance: RITUXIMAB
     Indication: Haemolytic anaemia
     Route: 065
     Dates: start: 202402, end: 202403
  12. RITUXIMAB [Suspect]
     Active Substance: RITUXIMAB
     Indication: Chronic lymphocytic leukaemia
     Route: 065
     Dates: start: 202404
  13. RITUXIMAB [Suspect]
     Active Substance: RITUXIMAB
     Indication: Chronic lymphocytic leukaemia
     Route: 065
     Dates: start: 2024, end: 202403
  14. RITUXIMAB [Suspect]
     Active Substance: RITUXIMAB
     Route: 065
     Dates: start: 202403
  15. RASBURICASE [Suspect]
     Active Substance: RASBURICASE
     Indication: Blood lactate dehydrogenase increased
     Route: 065
  16. VENETOCLAX [Suspect]
     Active Substance: VENETOCLAX
     Indication: Chronic lymphocytic leukaemia
     Route: 048
     Dates: start: 202402
  17. VENETOCLAX [Suspect]
     Active Substance: VENETOCLAX
     Indication: Chronic lymphocytic leukaemia
     Route: 065
     Dates: end: 202403
  18. VENETOCLAX [Suspect]
     Active Substance: VENETOCLAX
     Route: 065
     Dates: start: 202403
  19. VENETOCLAX [Suspect]
     Active Substance: VENETOCLAX
     Route: 065
     Dates: start: 202404, end: 20240429

REACTIONS (11)
  - Transient aphasia [Recovered/Resolved]
  - Neurological decompensation [Recovered/Resolved]
  - Tumour lysis syndrome [Recovered/Resolved]
  - Nervous system disorder [Recovered/Resolved]
  - Facial paralysis [Recovered/Resolved]
  - Autoimmune haemolytic anaemia [Recovered/Resolved]
  - Drug ineffective [Unknown]
  - Leukocytosis [Unknown]
  - Chronic lymphocytic leukaemia recurrent [Recovering/Resolving]
  - Somnolence [Recovered/Resolved]
  - Thrombocytopenia [Unknown]

NARRATIVE: CASE EVENT DATE: 20240101
